FAERS Safety Report 6118791-0 (Version None)
Quarter: 2009Q1

REPORT INFORMATION
  Report Type: 
  Country: None (occurrence: None)
  Receive Date: 20090316
  Receipt Date: 20090303
  Transmission Date: 20090719
  Serious: Yes (Hospitalization)
  Sender: FDA-Public Use
  Company Number: GB-RANBAXY-2009RR-22443

PATIENT
  Age: 27 Year
  Sex: Female

DRUGS (2)
  1. AMOXICILLIN [Suspect]
     Indication: LOWER RESPIRATORY TRACT INFECTION
     Dosage: 500 MG, TID
     Route: 048
     Dates: start: 20081221
  2. MIRENA [Concomitant]
     Dosage: UNK
     Dates: start: 20080401

REACTIONS (3)
  - ABDOMINAL PAIN [None]
  - RECTAL HAEMORRHAGE [None]
  - RENAL FAILURE ACUTE [None]
